FAERS Safety Report 17689904 (Version 1)
Quarter: 2020Q2

REPORT INFORMATION
  Report Type: Spontaneous
  Country: FR (occurrence: FR)
  Receive Date: 20200421
  Receipt Date: 20200421
  Transmission Date: 20200714
  Serious: Yes (Hospitalization)
  Sender: FDA-Public Use
  Company Number: FR-ABBVIE-20K-056-3371182-00

PATIENT
  Age: 73 Year
  Sex: Male
  Weight: 90 kg

DRUGS (3)
  1. FLECAINE LP [Interacting]
     Active Substance: FLECAINIDE
     Indication: ATRIAL FIBRILLATION
     Route: 048
     Dates: end: 20200325
  2. KALETRA [Suspect]
     Active Substance: LOPINAVIR\RITONAVIR
     Indication: CORONAVIRUS INFECTION
     Route: 048
     Dates: start: 20200325, end: 20200402
  3. ACEBUTOLOL BASE [Interacting]
     Active Substance: ACEBUTOLOL
     Indication: ATRIAL FIBRILLATION
     Route: 048
     Dates: end: 20200326

REACTIONS (2)
  - Drug interaction [Recovered/Resolved]
  - Electrocardiogram QT prolonged [Recovered/Resolved]

NARRATIVE: CASE EVENT DATE: 20200326
